FAERS Safety Report 24695955 (Version 1)
Quarter: 2024Q4

REPORT INFORMATION
  Report Type: Spontaneous
  Country: US (occurrence: US)
  Receive Date: 20241204
  Receipt Date: 20241204
  Transmission Date: 20250115
  Serious: No
  Sender: ADVANZ PHARMA
  Company Number: US-MLMSERVICE-20241106-PI250790-00095-1

PATIENT

DRUGS (18)
  1. HYDROXYCHLOROQUINE [Suspect]
     Active Substance: HYDROXYCHLOROQUINE
     Indication: Pancreatic carcinoma metastatic
     Dosage: UNK
     Dates: start: 2020, end: 2020
  2. HYDROXYCHLOROQUINE [Suspect]
     Active Substance: HYDROXYCHLOROQUINE
     Indication: Metastases to ovary
  3. HYDROXYCHLOROQUINE [Suspect]
     Active Substance: HYDROXYCHLOROQUINE
     Indication: Metastases to liver
  4. HYDROXYCHLOROQUINE [Suspect]
     Active Substance: HYDROXYCHLOROQUINE
     Indication: Malignant mesenteric neoplasm
  5. HYDROXYCHLOROQUINE [Suspect]
     Active Substance: HYDROXYCHLOROQUINE
     Indication: Pancreaticobiliary carcinoma
  6. HYDROXYCHLOROQUINE [Suspect]
     Active Substance: HYDROXYCHLOROQUINE
     Indication: Metastases to diaphragm
  7. HYDROXYCHLOROQUINE [Suspect]
     Active Substance: HYDROXYCHLOROQUINE
     Indication: HER2 positive pancreatic carcinoma
  8. HYDROXYCHLOROQUINE [Suspect]
     Active Substance: HYDROXYCHLOROQUINE
     Indication: Metastases to lung
  9. HYDROXYCHLOROQUINE [Suspect]
     Active Substance: HYDROXYCHLOROQUINE
     Indication: Metastases to peritoneum
  10. NIVOLUMAB [Concomitant]
     Active Substance: NIVOLUMAB
     Indication: Metastases to diaphragm
     Dosage: UNK
     Dates: start: 2020
  11. NIVOLUMAB [Concomitant]
     Active Substance: NIVOLUMAB
     Indication: Metastases to lung
  12. NIVOLUMAB [Concomitant]
     Active Substance: NIVOLUMAB
     Indication: Metastases to peritoneum
  13. NIVOLUMAB [Concomitant]
     Active Substance: NIVOLUMAB
     Indication: HER2 positive pancreatic carcinoma
  14. NIVOLUMAB [Concomitant]
     Active Substance: NIVOLUMAB
     Indication: Malignant mesenteric neoplasm
  15. NIVOLUMAB [Concomitant]
     Active Substance: NIVOLUMAB
     Indication: Pancreaticobiliary carcinoma
  16. NIVOLUMAB [Concomitant]
     Active Substance: NIVOLUMAB
     Indication: Metastases to ovary
  17. NIVOLUMAB [Concomitant]
     Active Substance: NIVOLUMAB
     Indication: Metastases to liver
  18. NIVOLUMAB [Concomitant]
     Active Substance: NIVOLUMAB
     Indication: Pancreatic carcinoma metastatic

REACTIONS (2)
  - Dyspepsia [Unknown]
  - Nausea [Unknown]

NARRATIVE: CASE EVENT DATE: 20200101
